FAERS Safety Report 5023101-6 (Version None)
Quarter: 2006Q2

REPORT INFORMATION
  Report Type: 
  Country: None (occurrence: None)
  Receive Date: 20060428
  Receipt Date: 20060210
  Transmission Date: 20061013
  Serious: Yes (Other)
  Sender: FDA-Public Use
  Company Number: 2006021492

PATIENT
  Age: 47 Year
  Sex: Male

DRUGS (5)
  1. BENADRYL [Suspect]
     Dosage: POSSIBLY 24 KAPSEALS, NASAL
     Route: 045
  2. QUETIAPINE FUMARATE [Concomitant]
  3. CLOZAPINE [Concomitant]
  4. BENZTROPINE MESYLATE [Concomitant]
  5. BUSPIRONE HCL [Concomitant]

REACTIONS (2)
  - INTENTIONAL DRUG MISUSE [None]
  - MEDICATION ERROR [None]
